FAERS Safety Report 15453310 (Version 2)
Quarter: 2018Q4

REPORT INFORMATION
  Report Type: Spontaneous
  Country: US (occurrence: US)
  Receive Date: 20181001
  Receipt Date: 20181025
  Transmission Date: 20190204
  Serious: No
  Sender: FDA-Public Use
  Company Number: US-PFIZER INC-2018390149

PATIENT
  Age: 58 Year
  Sex: Female
  Weight: 90.72 kg

DRUGS (2)
  1. LYRICA [Suspect]
     Active Substance: PREGABALIN
     Indication: DIABETIC NEUROPATHY
     Dosage: 100 MG, 3X/DAY
     Route: 048
  2. LYRICA [Suspect]
     Active Substance: PREGABALIN
     Indication: ARTHRITIS
     Dosage: 1 DF, 1X/DAY

REACTIONS (6)
  - Extra dose administered [Unknown]
  - Limb injury [Not Recovered/Not Resolved]
  - Intentional product misuse [Unknown]
  - Product dose omission [Unknown]
  - Arthralgia [Unknown]
  - Drug effect decreased [Unknown]

NARRATIVE: CASE EVENT DATE: 2017
